FAERS Safety Report 5825782-3 (Version None)
Quarter: 2008Q3

REPORT INFORMATION
  Report Type: 
  Country: None (occurrence: None)
  Receive Date: 20080728
  Receipt Date: 20080728
  Transmission Date: 20090109
  Serious: Yes (Other)
  Sender: FDA-Public Use
  Company Number: None

PATIENT
  Age: 68 Year
  Sex: Female
  Weight: 58.9676 kg

DRUGS (4)
  1. CIPROFLOXACIN [Suspect]
     Indication: INFECTION
     Dosage: 250 MG BID ORAL
     Route: 048
     Dates: start: 20080715, end: 20080719
  2. FLUCONAZOLE [Concomitant]
  3. ZESTORETIC [Concomitant]
  4. SYNTHROID [Concomitant]

REACTIONS (3)
  - DRUG EFFECT DECREASED [None]
  - PRURITUS [None]
  - URTICARIA [None]
